FAERS Safety Report 8059990-0 (Version None)
Quarter: 2012Q1

REPORT INFORMATION
  Report Type: 
  Country: None (occurrence: None)
  Receive Date: 20120120
  Receipt Date: 20120120
  Transmission Date: 20120608
  Serious: Yes (Other)
  Sender: FDA-Public Use
  Company Number: DE-BAYER-2012-006348

PATIENT
  Sex: Female

DRUGS (7)
  1. TETANUS VACCINE [Suspect]
     Dosage: UNK
     Dates: start: 20120116, end: 20120116
  2. INFLUENZA VACCINE [Suspect]
     Dates: start: 20110101, end: 20110101
  3. TRIAMTEREN [Concomitant]
     Indication: HYPERTENSION
  4. DIURETICS [Concomitant]
  5. MUSCLE RELAXANT [Concomitant]
  6. BETASERON [Suspect]
     Indication: PRODUCT USED FOR UNKNOWN INDICATION
     Dosage: UNK UNK, QOD
     Dates: start: 20090101
  7. HYDROCHLOROTHIAZIDE [Concomitant]
     Indication: HYPERTENSION

REACTIONS (7)
  - MUSCLE SPASMS [None]
  - CHILLS [None]
  - PYREXIA [None]
  - BONE FISSURE [None]
  - FALL [None]
  - NASOPHARYNGITIS [None]
  - MYALGIA [None]
